FAERS Safety Report 6028889-3 (Version None)
Quarter: 2009Q1

REPORT INFORMATION
  Report Type: 
  Country: None (occurrence: None)
  Receive Date: 20090105
  Receipt Date: 20090105
  Transmission Date: 20090719
  Serious: Yes (Hospitalization)
  Sender: FDA-Public Use
  Company Number: None

PATIENT
  Age: 49 Year
  Sex: Female

DRUGS (1)
  1. SULFAMETHOXAZOLE AND TRIMETHOPRIM [Suspect]
     Indication: URINARY TRACT INFECTION
     Dosage: 800/160 GM BID PO
     Route: 048
     Dates: start: 20080919, end: 20080929

REACTIONS (11)
  - ERYTHEMA [None]
  - LIP BLISTER [None]
  - LIP ULCERATION [None]
  - MOUTH ULCERATION [None]
  - NO REACTION ON PREVIOUS EXPOSURE TO DRUG [None]
  - OROPHARYNGEAL BLISTERING [None]
  - PRURITUS [None]
  - RASH [None]
  - SKIN EXFOLIATION [None]
  - STOMATITIS [None]
  - URTICARIA [None]
